FAERS Safety Report 21083144 (Version 1)
Quarter: 2022Q3

REPORT INFORMATION
  Report Type: Spontaneous
  Country: CA (occurrence: CA)
  Receive Date: 20220714
  Receipt Date: 20220714
  Transmission Date: 20221027
  Serious: Yes (Other)
  Sender: FDA-Public Use
  Company Number: CA-PFIZER INC-202200951221

PATIENT
  Age: 41 Year
  Sex: Female
  Weight: 65.76 kg

DRUGS (2)
  1. SERTRALINE HYDROCHLORIDE [Suspect]
     Active Substance: SERTRALINE HYDROCHLORIDE
     Indication: Injury
     Dosage: 25 MG (1 EVERY 1 DAY)
     Route: 048
  2. TRAZODONE HYDROCHLORIDE [Concomitant]
     Active Substance: TRAZODONE HYDROCHLORIDE
     Dosage: UNK
     Route: 065

REACTIONS (12)
  - Bruxism [Recovered/Resolved]
  - Chills [Recovered/Resolved]
  - Diarrhoea [Recovered/Resolved]
  - Dysphemia [Recovered/Resolved]
  - Insomnia [Recovered/Resolved]
  - Muscle spasms [Recovered/Resolved]
  - Musculoskeletal stiffness [Recovered/Resolved]
  - Mydriasis [Recovered/Resolved]
  - Pain [Recovered/Resolved]
  - Photophobia [Recovered/Resolved]
  - Serotonin syndrome [Recovered/Resolved]
  - Off label use [Unknown]
